FAERS Safety Report 10662198 (Version 1)
Quarter: 2014Q4

REPORT INFORMATION
  Report Type: Spontaneous
  Country: US (occurrence: None)
  Receive Date: 20141217
  Receipt Date: 20141217
  Transmission Date: 20150529
  Serious: Yes (Other)
  Sender: FDA-Public Use
  Company Number: None

PATIENT
  Age: 63 Year
  Sex: Female

DRUGS (1)
  1. BOTOX [Suspect]
     Active Substance: ONABOTULINUMTOXINA
     Indication: TORTICOLLIS
     Dosage: 200 UNITS EVERY 3 MTHS IM
     Route: 030
     Dates: start: 20140915, end: 20140920

REACTIONS (4)
  - Poisoning [None]
  - Blood pressure increased [None]
  - Dyspnoea [None]
  - Influenza [None]

NARRATIVE: CASE EVENT DATE: 20140919
